FAERS Safety Report 19733143 (Version 2)
Quarter: 2021Q3

REPORT INFORMATION
  Report Type: Spontaneous
  Country: JP (occurrence: JP)
  Receive Date: 20210823
  Receipt Date: 20210903
  Transmission Date: 20211014
  Serious: Yes (Hospitalization, Other)
  Sender: FDA-Public Use
  Company Number: JP-CELLTRION INC.-2021JP011437

PATIENT

DRUGS (5)
  1. MESALAZINE [Suspect]
     Active Substance: MESALAMINE
     Indication: COLITIS ULCERATIVE
     Dosage: UNK
     Route: 065
     Dates: start: 20210428
  2. INFLIXIMAB BS FOR I.V. INFUSION100 MG (CTH) [Suspect]
     Active Substance: INFLIXIMAB
     Dosage: UNK
     Route: 041
     Dates: start: 20210531, end: 20210531
  3. INFLIXIMAB BS FOR I.V. INFUSION100 MG (CTH) [Suspect]
     Active Substance: INFLIXIMAB
     Indication: COLITIS ULCERATIVE
     Dosage: 300 MG, SINGLE DOSE
     Route: 041
     Dates: start: 20210517, end: 20210517
  4. INFLIXIMAB BS FOR I.V. INFUSION100 MG (CTH) [Suspect]
     Active Substance: INFLIXIMAB
     Dosage: UNK
     Route: 041
     Dates: start: 20210714, end: 20210714
  5. JANUVIA [Suspect]
     Active Substance: SITAGLIPTIN PHOSPHATE
     Indication: DIABETES MELLITUS
     Dosage: UNK
     Route: 065
     Dates: start: 20210507

REACTIONS (3)
  - Interstitial lung disease [Not Recovered/Not Resolved]
  - Lymphocyte stimulation test positive [Unknown]
  - Off label use [Unknown]

NARRATIVE: CASE EVENT DATE: 20210812
